FAERS Safety Report 22198157 (Version 2)
Quarter: 2023Q2

REPORT INFORMATION
  Report Type: Spontaneous
  Country: GB (occurrence: GB)
  Receive Date: 20230411
  Receipt Date: 20230504
  Transmission Date: 20230722
  Serious: Yes (Death, Hospitalization, Other)
  Sender: FDA-Public Use
  Company Number: GB-002147023-NVSC2023GB080677

PATIENT
  Sex: Male

DRUGS (1)
  1. PLUVICTO [Suspect]
     Active Substance: LUTETIUM LU-177 VIPIVOTIDE TETRAXETAN
     Indication: Product used for unknown indication
     Dosage: UNK
     Route: 065

REACTIONS (9)
  - Death [Fatal]
  - Malaise [Unknown]
  - Tumour flare [Unknown]
  - Hepatic pain [Unknown]
  - Inflammation [Unknown]
  - Gene mutation identification test positive [Unknown]
  - Disease progression [Unknown]
  - Fatigue [Unknown]
  - Nausea [Unknown]
